FAERS Safety Report 19923308 (Version 1)
Quarter: 2021Q4

REPORT INFORMATION
  Report Type: Spontaneous
  Country: US (occurrence: US)
  Receive Date: 20211005
  Receipt Date: 20211005
  Transmission Date: 20220304
  Serious: No
  Sender: FDA-Public Use
  Company Number: None

PATIENT
  Age: 46 Year
  Sex: Male
  Weight: 156.94 kg

DRUGS (1)
  1. PHENTERMINE HYDROCHLORIDE\TOPIRAMATE [Suspect]
     Active Substance: PHENTERMINE HYDROCHLORIDE\TOPIRAMATE
     Indication: Obesity
     Dosage: ?          OTHER DOSE:1 TAB;
     Route: 048
     Dates: start: 20210210, end: 20210224

REACTIONS (3)
  - Depression [None]
  - Disease recurrence [None]
  - Suicidal ideation [None]

NARRATIVE: CASE EVENT DATE: 20210224
